FAERS Safety Report 18688224 (Version 1)
Quarter: 2020Q4

REPORT INFORMATION
  Report Type: Spontaneous
  Country: JP (occurrence: JP)
  Receive Date: 20201231
  Receipt Date: 20201231
  Transmission Date: 20210114
  Serious: Yes (Other)
  Sender: FDA-Public Use
  Company Number: JP-ASTRAZENECA-2020SF61083

PATIENT
  Age: 79 Year
  Sex: Male

DRUGS (3)
  1. CRESTOR OD [Suspect]
     Active Substance: ROSUVASTATIN CALCIUM
     Indication: HYPERLIPIDAEMIA
     Route: 048
     Dates: start: 202007, end: 20201124
  2. AVASTIN [Concomitant]
     Active Substance: BEVACIZUMAB
     Indication: RECTAL CANCER
     Dosage: DOSE UNKNOWN
     Route: 065
  3. LONSURF [Concomitant]
     Active Substance: TIPIRACIL HYDROCHLORIDE\TRIFLURIDINE
     Indication: RECTAL CANCER
     Dosage: DOSE UNKNOWN
     Route: 065

REACTIONS (4)
  - Malignant neoplasm progression [Unknown]
  - Rectal cancer [Unknown]
  - Hepatic function abnormal [Not Recovered/Not Resolved]
  - Gallbladder obstruction [Unknown]

NARRATIVE: CASE EVENT DATE: 20201124
